FAERS Safety Report 8455928-2 (Version None)
Quarter: 2012Q2

REPORT INFORMATION
  Report Type: 
  Country: None (occurrence: None)
  Receive Date: 20120621
  Receipt Date: 20120615
  Transmission Date: 20120825
  Serious: Yes (Other)
  Sender: FDA-Public Use
  Company Number: PHHY2012NL052536

PATIENT
  Sex: Female
  Weight: 66 kg

DRUGS (7)
  1. AMIODARONE HCL [Concomitant]
     Dosage: 1 DF, QD
  2. LOSANOX [Concomitant]
     Dosage: 1 DF, QD
  3. VERAPAMIL [Concomitant]
     Dosage: 1 DF, QD
  4. SULFASALAZINE [Suspect]
     Route: 048
     Dates: start: 20110910, end: 20110928
  5. AMIODARONE HCL [Concomitant]
     Dosage: 1200 MG, DAILY
  6. CELEBREX [Concomitant]
     Dosage: 1 DF, BID
  7. METHOTREXATE [Suspect]
     Indication: RHEUMATOID ARTHRITIS
     Route: 048
     Dates: start: 20111206

REACTIONS (1)
  - ATRIAL FIBRILLATION [None]
